FAERS Safety Report 9749713 (Version 3)
Quarter: 2014Q1

REPORT INFORMATION
  Report Type: Spontaneous
  Country: IT (occurrence: IT)
  Receive Date: 20131212
  Receipt Date: 20140121
  Transmission Date: 20141002
  Serious: Yes (Hospitalization)
  Sender: FDA-Public Use
  Company Number: IT-BRISTOL-MYERS SQUIBB COMPANY-19878610

PATIENT
  Age: 90 Year
  Sex: Female

DRUGS (7)
  1. COUMADIN TABS 5 MG [Suspect]
     Indication: ATRIAL FIBRILLATION
     Dosage: 1DF:1 UNIT
     Route: 048
     Dates: start: 20120101, end: 20131028
  2. SERTRALINE HCL [Concomitant]
     Dosage: 1DF:1 UNIT
     Route: 048
     Dates: start: 20120101, end: 20131028
  3. LASIX [Concomitant]
     Indication: HYPERTENSION
     Dosage: 1DF: 818UNIT
     Route: 048
     Dates: start: 20120101, end: 20131028
  4. ISOPTIN [Concomitant]
     Dosage: 1UNIT?TABS
     Route: 048
     Dates: start: 20120101, end: 20131028
  5. MOVICOL [Concomitant]
     Dosage: ORAL SOLUTION POWDER?1DF:13.8G UNIT
     Route: 048
     Dates: start: 20120101, end: 20131028
  6. PEPTAZOL [Concomitant]
     Indication: PEPTIC ULCER
     Dosage: 1DF:1 UNIT ?TABS
     Route: 048
     Dates: start: 20120101, end: 20131028
  7. STILNOX [Concomitant]
     Indication: DEPRESSION
     Dosage: 1DF:1 UNIT?TABS
     Route: 048
     Dates: start: 20120101, end: 20131028

REACTIONS (2)
  - Contusion [Recovered/Resolved]
  - Oedema peripheral [Recovered/Resolved]
